FAERS Safety Report 14749986 (Version 1)
Quarter: 2018Q2

REPORT INFORMATION
  Report Type: Spontaneous
  Country: US (occurrence: US)
  Receive Date: 20180412
  Receipt Date: 20180412
  Transmission Date: 20180711
  Serious: No
  Sender: FDA-Public Use
  Company Number: US-CELGENEUS-USA-2016122599

PATIENT
  Sex: Female
  Weight: 63.56 kg

DRUGS (29)
  1. REVLIMID [Suspect]
     Active Substance: LENALIDOMIDE
     Dosage: 5 MILLIGRAM
     Route: 048
     Dates: start: 200905
  2. MULTIVITAMINS [Concomitant]
     Active Substance: VITAMINS
     Indication: HYPERSENSITIVITY
  3. ASPIRIN EC [Concomitant]
     Active Substance: ASPIRIN
     Indication: PRODUCT USED FOR UNKNOWN INDICATION
     Route: 065
  4. BENADRYL ALLERGY [Concomitant]
     Active Substance: DIPHENHYDRAMINE HYDROCHLORIDE
     Indication: HYPERSENSITIVITY
  5. BENADRYL ALLERGY [Concomitant]
     Active Substance: DIPHENHYDRAMINE HYDROCHLORIDE
     Indication: HYPERSENSITIVITY
  6. MULTIVITAMINS [Concomitant]
     Active Substance: VITAMINS
     Indication: HYPERSENSITIVITY
  7. FISH OIL [Concomitant]
     Active Substance: FISH OIL
     Indication: PRODUCT USED FOR UNKNOWN INDICATION
     Route: 065
  8. REVLIMID [Suspect]
     Active Substance: LENALIDOMIDE
     Indication: MYELODYSPLASTIC SYNDROME
     Dosage: 10 MILLIGRAM
     Route: 048
     Dates: start: 200903
  9. CALCIUM 600+D [Concomitant]
     Active Substance: CALCIUM\VITAMIN D
     Indication: HYPERSENSITIVITY
  10. MULTIVITAMINS [Concomitant]
     Active Substance: VITAMINS
     Indication: HYPERSENSITIVITY
  11. ASPIRIN EC [Concomitant]
     Active Substance: ASPIRIN
     Indication: HYPERSENSITIVITY
  12. ASPIRIN EC [Concomitant]
     Active Substance: ASPIRIN
     Indication: HYPERSENSITIVITY
  13. ASPIRIN EC [Concomitant]
     Active Substance: ASPIRIN
     Indication: HYPERSENSITIVITY
  14. SYNTHROID [Concomitant]
     Active Substance: LEVOTHYROXINE SODIUM
     Indication: PRODUCT USED FOR UNKNOWN INDICATION
     Route: 065
  15. BENADRYL ALLERGY [Concomitant]
     Active Substance: DIPHENHYDRAMINE HYDROCHLORIDE
     Indication: HYPERSENSITIVITY
     Route: 065
  16. BENADRYL ALLERGY [Concomitant]
     Active Substance: DIPHENHYDRAMINE HYDROCHLORIDE
     Indication: HYPERSENSITIVITY
  17. BENADRYL ALLERGY [Concomitant]
     Active Substance: DIPHENHYDRAMINE HYDROCHLORIDE
     Indication: HYPERSENSITIVITY
  18. CALCIUM 600+D [Concomitant]
     Active Substance: CALCIUM\VITAMIN D
     Indication: PRODUCT USED FOR UNKNOWN INDICATION
     Route: 065
  19. CALCIUM 600+D [Concomitant]
     Active Substance: CALCIUM\VITAMIN D
     Indication: HYPERSENSITIVITY
  20. CALCIUM 600+D [Concomitant]
     Active Substance: CALCIUM\VITAMIN D
     Indication: HYPERSENSITIVITY
  21. ASPIRIN EC [Concomitant]
     Active Substance: ASPIRIN
     Indication: HYPERSENSITIVITY
  22. REVLIMID [Suspect]
     Active Substance: LENALIDOMIDE
     Dosage: 5 MILLIGRAM
     Route: 048
     Dates: start: 20091223
  23. BENADRYL ALLERGY [Concomitant]
     Active Substance: DIPHENHYDRAMINE HYDROCHLORIDE
     Indication: HYPERSENSITIVITY
  24. CALCIUM 600+D [Concomitant]
     Active Substance: CALCIUM\VITAMIN D
     Indication: HYPERSENSITIVITY
  25. CALCIUM 600+D [Concomitant]
     Active Substance: CALCIUM\VITAMIN D
     Indication: HYPERSENSITIVITY
  26. MULTIVITAMINS [Concomitant]
     Active Substance: VITAMINS
     Indication: PRODUCT USED FOR UNKNOWN INDICATION
     Route: 065
  27. ASPIRIN EC [Concomitant]
     Active Substance: ASPIRIN
     Indication: HYPERSENSITIVITY
  28. MULTIVITAMINS [Concomitant]
     Active Substance: VITAMINS
     Indication: HYPERSENSITIVITY
  29. MULTIVITAMINS [Concomitant]
     Active Substance: VITAMINS
     Indication: HYPERSENSITIVITY

REACTIONS (2)
  - Sinusitis [Unknown]
  - Sinus disorder [Unknown]
